FAERS Safety Report 4855469-5 (Version None)
Quarter: 2005Q4

REPORT INFORMATION
  Report Type: 
  Country: None (occurrence: None)
  Receive Date: 20051216
  Receipt Date: 20051125
  Transmission Date: 20060501
  Serious: Yes (Death)
  Sender: FDA-Public Use
  Company Number: US-BOEHRINGER INGELHEIM PHARMACEUTICALS, INC.-2005-BP-20779BP

PATIENT
  Age: 79 Year
  Sex: Male
  Weight: 55.4 kg

DRUGS (3)
  1. FLOMAX [Suspect]
     Indication: BENIGN PROSTATIC HYPERPLASIA
     Route: 048
     Dates: start: 20051001, end: 20051120
  2. FLOMAX [Suspect]
     Route: 048
     Dates: start: 20051121
  3. HYTRIN [Concomitant]
     Dates: start: 20051121

REACTIONS (1)
  - SUDDEN DEATH [None]
